FAERS Safety Report 8053542-4 (Version None)
Quarter: 2012Q1

REPORT INFORMATION
  Report Type: 
  Country: None (occurrence: None)
  Receive Date: 20120118
  Receipt Date: 20120106
  Transmission Date: 20120608
  Serious: Yes (Hospitalization, Other)
  Sender: FDA-Public Use
  Company Number: FR-ALEXION PHARMACEUTICALS INC.-A201101459

PATIENT
  Sex: Male

DRUGS (11)
  1. VALACYCLOVIR HYDROCHLORIDE [Suspect]
     Dosage: 250 MG QD
     Route: 048
     Dates: start: 20110801, end: 20110922
  2. EUPRESSYL [Suspect]
     Dosage: 60 MG TID
     Route: 048
     Dates: end: 20110922
  3. LASIX [Concomitant]
  4. ESIDRIX [Suspect]
     Dosage: 25 MG QD
     Route: 048
     Dates: end: 20110922
  5. LEXOMIL [Concomitant]
  6. NEBIVOLOL HCL [Concomitant]
  7. PANTOPRAZOLE [Concomitant]
  8. HYPERIUM [Suspect]
     Dosage: 1 MG BID
     Route: 048
     Dates: end: 20110922
  9. SOLIRIS [Suspect]
     Indication: HAEMOLYTIC URAEMIC SYNDROME
     Dosage: 1200 MG UNK
     Route: 042
  10. PHENOXYMETHYL PENICILLIN [Suspect]
     Dosage: 1 MUI BID
     Route: 048
     Dates: start: 20110801, end: 20110922
  11. FOLIC ACID [Concomitant]

REACTIONS (2)
  - RASH MACULO-PAPULAR [None]
  - ACUTE GENERALISED EXANTHEMATOUS PUSTULOSIS [None]
